FAERS Safety Report 10228017 (Version 1)
Quarter: 2014Q2

REPORT INFORMATION
  Report Type: Spontaneous
  Country: FR (occurrence: FR)
  Receive Date: 20140610
  Receipt Date: 20140610
  Transmission Date: 20141212
  Serious: Yes (Hospitalization)
  Sender: FDA-Public Use
  Company Number: FR-PFIZER INC-2014152271

PATIENT
  Age: 84 Year
  Sex: Female

DRUGS (13)
  1. ALPRAZOLAM [Suspect]
     Dosage: UNK
     Route: 048
     Dates: end: 20140503
  2. ALDACTONE [Suspect]
     Dosage: UNK
     Route: 048
     Dates: end: 20140503
  3. DISCOTRINE [Suspect]
     Dosage: UNK
     Route: 062
  4. LASILIX [Suspect]
     Dosage: UNK
     Route: 048
     Dates: end: 20140503
  5. KREDEX [Suspect]
     Dosage: UNK
     Route: 048
  6. ODRIK [Suspect]
     Dosage: UNK
     Route: 048
     Dates: end: 20140503
  7. SEROPRAM [Suspect]
     Dosage: UNK
     Route: 048
     Dates: end: 20140503
  8. STILNOX [Suspect]
     Dosage: UNK
     Route: 048
  9. THERALENE [Suspect]
     Dosage: UNK
     Route: 048
     Dates: end: 20140503
  10. DOGMATIL [Suspect]
     Dosage: UNK
     Route: 048
     Dates: end: 20140503
  11. COUMADINE [Concomitant]
     Dosage: UNK
  12. COLCHIMAX [Concomitant]
     Dosage: UNK
  13. OXYCONTIN [Concomitant]
     Dosage: UNK

REACTIONS (3)
  - Depressed level of consciousness [Recovered/Resolved]
  - Hypotension [Recovered/Resolved]
  - Fall [Recovered/Resolved]
